FAERS Safety Report 9845046 (Version 2)
Quarter: 2014Q1

REPORT INFORMATION
  Report Type: Spontaneous
  Country: CH (occurrence: None)
  Receive Date: 20140122
  Receipt Date: 20140326
  Transmission Date: 20141002
  Serious: Yes (Other)
  Sender: FDA-Public Use
  Company Number: 20140006

PATIENT
  Age: 42 Year
  Sex: Female

DRUGS (1)
  1. FERINJECT [Suspect]
     Indication: IRON DEFICIENCY ANAEMIA
     Route: 042
     Dates: start: 201307, end: 201307

REACTIONS (3)
  - Urticaria [None]
  - Nausea [None]
  - Pain in extremity [None]
